FAERS Safety Report 9220760 (Version 1)
Quarter: 2013Q2

REPORT INFORMATION
  Report Type: Spontaneous
  Country: BR (occurrence: BR)
  Receive Date: 20130409
  Receipt Date: 20130409
  Transmission Date: 20140414
  Serious: Yes (Hospitalization, Other)
  Sender: FDA-Public Use
  Company Number: BR-PFIZER INC-2010069230

PATIENT
  Age: 66 Year
  Sex: Male

DRUGS (1)
  1. VIAGRA [Suspect]
     Indication: ERECTILE DYSFUNCTION
     Dosage: UNK
     Route: 048
     Dates: start: 1990

REACTIONS (5)
  - Prostate cancer [Unknown]
  - Blood pressure increased [Unknown]
  - Product quality issue [Unknown]
  - Feeling abnormal [Unknown]
  - Cold sweat [Unknown]
